FAERS Safety Report 4589587-6 (Version None)
Quarter: 2005Q1

REPORT INFORMATION
  Report Type: 
  Country: None (occurrence: None)
  Receive Date: 20050223
  Receipt Date: 20050217
  Transmission Date: 20050727
  Serious: Yes (Hospitalization)
  Sender: FDA-Public Use
  Company Number: NL-MERCK-0502NLD00043

PATIENT
  Age: 53 Year
  Sex: Male

DRUGS (2)
  1. SINGULAIR [Suspect]
     Route: 065
     Dates: start: 20000101, end: 20050213
  2. FLUTICASONE PROPIONATE AND SALMETEROL XINAFOATE [Concomitant]
     Route: 065

REACTIONS (4)
  - ALLERGIC GRANULOMATOUS ANGIITIS [None]
  - CEREBRAL DISORDER [None]
  - MYOCARDIAL INFARCTION [None]
  - VASCULITIS [None]
